FAERS Safety Report 6597652-7 (Version None)
Quarter: 2010Q1

REPORT INFORMATION
  Report Type: 
  Country: None (occurrence: None)
  Receive Date: 20100219
  Receipt Date: 20100219
  Transmission Date: 20100710
  Serious: No
  Sender: FDA-Public Use
  Company Number: None

PATIENT
  Age: 55 Year
  Sex: Female
  Weight: 40.8237 kg

DRUGS (1)
  1. FOSAMAX [Suspect]

REACTIONS (13)
  - ARTHRALGIA [None]
  - BACK PAIN [None]
  - BONE DENSITY DECREASED [None]
  - CONSTIPATION [None]
  - ERYTHEMA [None]
  - GINGIVAL RECESSION [None]
  - INJURY [None]
  - LOOSE TOOTH [None]
  - MUSCULOSKELETAL STIFFNESS [None]
  - NAIL GROWTH ABNORMAL [None]
  - NAUSEA [None]
  - PAIN [None]
  - PAIN IN EXTREMITY [None]
